FAERS Safety Report 8113027 (Version 3)
Quarter: 2013Q2

REPORT INFORMATION
  Report Type: Spontaneous
  Country: US (occurrence: US)
  Receive Date: 20110830
  Receipt Date: 20130611
  Transmission Date: 20140414
  Serious: Yes (Other)
  Sender: FDA-Public Use
  Company Number: US-ELI_LILLY_AND_COMPANY-US201107003485

PATIENT
  Sex: Female

DRUGS (9)
  1. FORTEO [Suspect]
     Indication: OSTEOPOROSIS
     Dosage: 20 UG, QD
     Route: 065
     Dates: start: 201106
  2. FORTEO [Suspect]
     Dosage: 20 UG, QD
     Route: 065
  3. FORTEO [Suspect]
     Dosage: 20 UG, QD
     Route: 065
     Dates: end: 20130509
  4. LEVOXYL [Concomitant]
  5. LOMOTIL [Concomitant]
  6. LAMOTRIGIN [Concomitant]
  7. LASIX [Concomitant]
     Dosage: 40 MG, UNK
  8. POTASSIUM [Concomitant]
  9. FOLIC ACID [Concomitant]

REACTIONS (8)
  - Renal impairment [Unknown]
  - Fall [Recovered/Resolved]
  - Foot fracture [Unknown]
  - Fall [Unknown]
  - Hand fracture [Unknown]
  - Pain in extremity [Unknown]
  - Back pain [Not Recovered/Not Resolved]
  - Limb injury [Unknown]
